FAERS Safety Report 7905128-7 (Version None)
Quarter: 2011Q4

REPORT INFORMATION
  Report Type: 
  Country: None (occurrence: None)
  Receive Date: 20111109
  Receipt Date: 20111103
  Transmission Date: 20120403
  Serious: Yes (Other)
  Sender: FDA-Public Use
  Company Number: CHPA2011US015494

PATIENT
  Age: 29 Year
  Sex: Female

DRUGS (3)
  1. EXCEDRIN (MIGRAINE) [Suspect]
     Indication: HEADACHE
     Dosage: 2 DF, UNK
     Route: 048
     Dates: start: 20111028, end: 20111028
  2. EXCEDRIN (MIGRAINE) [Suspect]
     Dosage: 1 DF, ONCE/SINGLE
     Route: 048
     Dates: start: 20111103, end: 20111103
  3. LOESTRIN 1.5/30 [Concomitant]
     Indication: CONTRACEPTION
     Dosage: 1 A DAY
     Route: 048
     Dates: start: 20111001, end: 20111102

REACTIONS (13)
  - UNDERDOSE [None]
  - THROAT TIGHTNESS [None]
  - LIP DRY [None]
  - PSYCHOMOTOR HYPERACTIVITY [None]
  - DYSPHAGIA [None]
  - TREMOR [None]
  - NERVOUSNESS [None]
  - HYPERACUSIS [None]
  - PHOTOPHOBIA [None]
  - DEHYDRATION [None]
  - TACHYCARDIA [None]
  - HYPOAESTHESIA ORAL [None]
  - NAUSEA [None]
